FAERS Safety Report 7483250-X (Version None)
Quarter: 2011Q2

REPORT INFORMATION
  Report Type: 
  Country: None (occurrence: None)
  Receive Date: 20110517
  Receipt Date: 20110508
  Transmission Date: 20111010
  Serious: Yes (Hospitalization)
  Sender: FDA-Public Use
  Company Number: JP-BRISTOL-MYERS SQUIBB COMPANY-15744261

PATIENT
  Age: 62 Year
  Sex: Female
  Weight: 50 kg

DRUGS (9)
  1. MENTHOL [Concomitant]
     Route: 061
  2. ABILIFY [Suspect]
     Indication: SCHIZOPHRENIA
     Route: 048
     Dates: start: 20110401, end: 20110507
  3. THEO-DUR [Concomitant]
     Dosage: TABS
     Dates: start: 19940913
  4. TRIAZOLAM [Concomitant]
     Dosage: TABS
     Dates: start: 20110323
  5. MECOBALAMIN [Concomitant]
     Dosage: TABS
     Dates: start: 20080402
  6. FLUOROMETHOLONE [Concomitant]
     Route: 047
  7. CAMPHOR [Concomitant]
     Route: 061
  8. ZYPREXA [Concomitant]
     Dates: start: 20070406, end: 20110420
  9. BUFFERIN TABS 330 MG [Concomitant]
     Dates: start: 20010516

REACTIONS (1)
  - PSYCHIATRIC SYMPTOM [None]
